FAERS Safety Report 23770623 (Version 4)
Quarter: 2024Q2

REPORT INFORMATION
  Report Type: Spontaneous
  Country: US (occurrence: US)
  Receive Date: 20240422
  Receipt Date: 20240605
  Transmission Date: 20240716
  Serious: Yes (Death, Hospitalization, Other)
  Sender: FDA-Public Use
  Company Number: US-SA-SAC20240416001431

PATIENT

DRUGS (3)
  1. LARONIDASE [Suspect]
     Active Substance: LARONIDASE
     Indication: Mucopolysaccharidosis I
     Dosage: 26.1 (UNITS NOT PROVIDED), QW
     Route: 042
     Dates: start: 20080310
  2. LARONIDASE [Suspect]
     Active Substance: LARONIDASE
     Indication: Mucopolysaccharidosis
     Dosage: 26.1 MG, QW
     Route: 042
     Dates: start: 201610
  3. LARONIDASE [Suspect]
     Active Substance: LARONIDASE
     Indication: Mucopolysaccharidosis I

REACTIONS (9)
  - Cardiac failure [Fatal]
  - Oxygen saturation decreased [Unknown]
  - Heart rate increased [Unknown]
  - Pneumonia [Unknown]
  - Heart sounds abnormal [Not Recovered/Not Resolved]
  - Troponin abnormal [Not Recovered/Not Resolved]
  - Blood pressure decreased [Unknown]
  - Troponin increased [Unknown]
  - Exposure during pregnancy [Unknown]

NARRATIVE: CASE EVENT DATE: 20230101
